FAERS Safety Report 19706638 (Version 1)
Quarter: 2021Q3

REPORT INFORMATION
  Report Type: Report from Study
  Country: US (occurrence: US)
  Receive Date: 20210817
  Receipt Date: 20210817
  Transmission Date: 20211014
  Serious: Yes (Other)
  Sender: FDA-Public Use
  Company Number: US-INSMED, INC.-2021-08375-US

PATIENT
  Sex: Female

DRUGS (2)
  1. ARIKAYCE [Suspect]
     Active Substance: AMIKACIN
     Indication: PRODUCT USED FOR UNKNOWN INDICATION
     Dosage: 590 MILLIGRAM
     Route: 055
     Dates: start: 20210423, end: 2021
  2. ARIKAYCE [Suspect]
     Active Substance: AMIKACIN
     Dosage: 590 MILLIGRAM, QOD
     Route: 055
     Dates: start: 2021

REACTIONS (8)
  - Emergency care [Unknown]
  - Dysphonia [Not Recovered/Not Resolved]
  - Product packaging difficult to open [Unknown]
  - Fatigue [Recovering/Resolving]
  - Wrong technique in product usage process [Unknown]
  - Dyspnoea [Unknown]
  - Aphonia [Recovering/Resolving]
  - Off label use [Unknown]

NARRATIVE: CASE EVENT DATE: 2021
